FAERS Safety Report 9404907 (Version 1)
Quarter: 2013Q3

REPORT INFORMATION
  Report Type: Spontaneous
  Country: DE (occurrence: DE)
  Receive Date: 20130717
  Receipt Date: 20130717
  Transmission Date: 20140515
  Serious: Yes (Hospitalization)
  Sender: FDA-Public Use
  Company Number: DE-ASTRAZENECA-2013SE51285

PATIENT
  Age: 74 Year
  Sex: Female
  Weight: 93 kg

DRUGS (4)
  1. SEROQUEL [Suspect]
     Indication: BIPOLAR DISORDER
     Route: 048
  2. ORIFIRIL LONG [Suspect]
     Indication: BIPOLAR DISORDER
     Route: 048
     Dates: end: 20130612
  3. ZYPREXA [Suspect]
     Indication: BIPOLAR DISORDER
     Route: 048
     Dates: end: 20130612
  4. L-THYROXIN [Concomitant]

REACTIONS (1)
  - Generalised oedema [Recovering/Resolving]
